FAERS Safety Report 16785494 (Version 4)
Quarter: 2020Q2

REPORT INFORMATION
  Report Type: Spontaneous
  Country: IT (occurrence: IT)
  Receive Date: 20190909
  Receipt Date: 20200401
  Transmission Date: 20200713
  Serious: Yes (Other)
  Sender: FDA-Public Use
  Company Number: IT-PFIZER INC-2019387005

PATIENT
  Age: 79 Year
  Sex: Male

DRUGS (1)
  1. AMIODARONE HCL [Suspect]
     Active Substance: AMIODARONE HYDROCHLORIDE
     Indication: ATRIAL FIBRILLATION
     Dosage: 400 MG, DAILY

REACTIONS (10)
  - Interstitial lung disease [Recovered/Resolved]
  - Lung opacity [Recovered/Resolved]
  - Macrophages increased [Recovered/Resolved]
  - Pulmonary mass [Recovering/Resolving]
  - Lung disorder [Recovered/Resolved]
  - Bronchoalveolar lavage abnormal [Recovered/Resolved]
  - Multifocal micronodular pneumocyte hyperplasia [Recovered/Resolved]
  - Cough [Recovered/Resolved]
  - Pulmonary toxicity [Recovered/Resolved]
  - Dyspnoea exertional [Recovered/Resolved]
